FAERS Safety Report 9655424 (Version 2)
Quarter: 2013Q4

REPORT INFORMATION
  Report Type: Spontaneous
  Country: US (occurrence: US)
  Receive Date: 20131029
  Receipt Date: 20131029
  Transmission Date: 20140711
  Serious: No
  Sender: FDA-Public Use
  Company Number: US-PURDUE-USA-2012-0087625

PATIENT
  Sex: Female
  Weight: 61.22 kg

DRUGS (4)
  1. OXYCONTIN (NDA 22-272) [Suspect]
     Indication: BACK INJURY
     Dosage: 80 MG, TID
     Route: 048
     Dates: start: 1998
  2. OXYCONTIN (NDA 22-272) [Suspect]
     Indication: INTERVERTEBRAL DISC PROTRUSION
  3. OXYCONTIN (NDA 22-272) [Suspect]
     Indication: INTERVERTEBRAL DISC DEGENERATION
  4. OXYCONTIN (NDA 22-272) [Suspect]
     Indication: PAIN

REACTIONS (3)
  - Dyskinesia [Unknown]
  - Back pain [Unknown]
  - Drug effect decreased [Unknown]
